FAERS Safety Report 8660429 (Version 3)
Quarter: 2014Q1

REPORT INFORMATION
  Report Type: Spontaneous
  Country: US (occurrence: None)
  Receive Date: 20120402
  Receipt Date: 20140128
  Transmission Date: 20141002
  Serious: Yes (Hospitalization)
  Sender: FDA-Public Use
  Company Number: A-US2011-56448

PATIENT
  Age: 52 Year
  Sex: Female

DRUGS (3)
  1. TRACLEER [Suspect]
     Indication: PULMONARY ARTERIAL HYPERTENSION
     Route: 048
  2. REVATIO [Concomitant]
  3. CARDIZEM [Concomitant]

REACTIONS (6)
  - Abdominal pain upper [None]
  - Influenza like illness [None]
  - Anaemia [None]
  - Fluid retention [None]
  - Sinusitis [None]
  - Sinus congestion [None]
